FAERS Safety Report 23916788 (Version 1)
Quarter: 2024Q2

REPORT INFORMATION
  Report Type: Spontaneous
  Country: IT (occurrence: IT)
  Receive Date: 20240529
  Receipt Date: 20240529
  Transmission Date: 20240716
  Serious: Yes (Other)
  Sender: FDA-Public Use
  Company Number: None

PATIENT
  Age: 18 Month
  Sex: Female
  Weight: 11 kg

DRUGS (2)
  1. VANCOMYCIN [Suspect]
     Active Substance: VANCOMYCIN
     Indication: Osteomyelitis acute
     Dosage: UNK (DOSAGE PROGRESSIVELY INCREASED UNTIL REACHING 220 MG X2/DAY FROM 13/05)
     Route: 042
     Dates: start: 20240509
  2. CEFTRIAXONE [Concomitant]
     Active Substance: CEFTRIAXONE\CEFTRIAXONE SODIUM
     Dosage: UNK
     Route: 065
     Dates: start: 20240509

REACTIONS (1)
  - Vancomycin infusion reaction [Recovered/Resolved]

NARRATIVE: CASE EVENT DATE: 20240516
